FAERS Safety Report 12721096 (Version 2)
Quarter: 2016Q3

REPORT INFORMATION
  Report Type: Report from Study
  Country: US (occurrence: US)
  Receive Date: 20160907
  Receipt Date: 20160928
  Transmission Date: 20161109
  Serious: Yes (Hospitalization)
  Sender: FDA-Public Use
  Company Number: US-ACTELION-A-US2016-141761

PATIENT
  Age: 93 Year
  Sex: Female

DRUGS (2)
  1. COUMADIN [Concomitant]
     Active Substance: WARFARIN SODIUM
  2. TRACLEER [Suspect]
     Active Substance: BOSENTAN
     Indication: PULMONARY HYPERTENSION
     Dosage: 62.5 MG, UNK
     Route: 048
     Dates: start: 20090817

REACTIONS (4)
  - Cystitis [Unknown]
  - Accidental overdose [Unknown]
  - Hypertension [Unknown]
  - Cardiac disorder [Unknown]
